FAERS Safety Report 5243109-5 (Version None)
Quarter: 2007Q1

REPORT INFORMATION
  Report Type: 
  Country: None (occurrence: None)
  Receive Date: 20070221
  Receipt Date: 20070126
  Transmission Date: 20070707
  Serious: Yes (Death, Hospitalization, Other)
  Sender: FDA-Public Use
  Company Number: US-PFIZER INC-2006080330

PATIENT
  Sex: Female
  Weight: 63.5 kg

DRUGS (1)
  1. BEXTRA [Suspect]
     Indication: ARTHRITIS
     Route: 048
     Dates: start: 20020401, end: 20040501

REACTIONS (2)
  - CEREBRAL INFARCTION [None]
  - TOXIC EPIDERMAL NECROLYSIS [None]
